FAERS Safety Report 4662901-9 (Version None)
Quarter: 2005Q2

REPORT INFORMATION
  Report Type: 
  Country: None (occurrence: None)
  Receive Date: 20050511
  Receipt Date: 20050414
  Transmission Date: 20051028
  Serious: Yes (Other)
  Sender: FDA-Public Use
  Company Number: 401840

PATIENT
  Age: 52 Year
  Sex: Male
  Weight: 91.6 kg

DRUGS (2)
  1. PEGASYS [Suspect]
     Indication: HEPATITIS C VIRUS
     Dosage: 1 PER WEEK, SUBCUTANEOUS
     Route: 058
     Dates: start: 20030905, end: 20040805
  2. COPEGUS [Suspect]
     Indication: HEPATITIS C VIRUS
     Dosage: ORAL
     Route: 048
     Dates: start: 20030905, end: 20040805

REACTIONS (1)
  - THERAPY NON-RESPONDER [None]
